FAERS Safety Report 5247553-1 (Version None)
Quarter: 2007Q1

REPORT INFORMATION
  Report Type: 
  Country: None (occurrence: None)
  Receive Date: 20070227
  Receipt Date: 20070216
  Transmission Date: 20070707
  Serious: Yes (Other)
  Sender: FDA-Public Use
  Company Number: PHRM2007FR00862

PATIENT
  Age: 48 Year
  Sex: Female

DRUGS (1)
  1. VOLTARENE 0,1% (NVO) [Suspect]
     Dosage: 2 DRP PER DAY IN ONE EYE
     Dates: start: 19960101

REACTIONS (2)
  - BLOOD CREATININE INCREASED [None]
  - GLOMERULAR FILTRATION RATE DECREASED [None]
